FAERS Safety Report 10474044 (Version 1)
Quarter: 2014Q3

REPORT INFORMATION
  Report Type: Report from Study
  Country: ZA (occurrence: ZA)
  Receive Date: 20140924
  Receipt Date: 20140924
  Transmission Date: 20150326
  Serious: Yes (Hospitalization)
  Sender: FDA-Public Use
  Company Number: ZA-GLAXOSMITHKLINE-B0800408F

PATIENT
  Age: 74 Year
  Sex: Male
  Weight: 95.2 kg

DRUGS (17)
  1. ALTOSEC [Concomitant]
     Active Substance: OMEPRAZOLE
     Indication: GASTROOESOPHAGEAL REFLUX DISEASE
     Dosage: 20MG PER DAY
     Route: 048
     Dates: start: 201012, end: 20140808
  2. OMEPRAZOLE. [Concomitant]
     Active Substance: OMEPRAZOLE
     Indication: DYSPEPSIA
     Dosage: 20MG PER DAY
     Route: 048
     Dates: start: 20130922
  3. PREXUM [Concomitant]
     Active Substance: PERINDOPRIL ERBUMINE
     Indication: HYPERTENSION
     Dosage: 8MG PER DAY
     Route: 048
     Dates: start: 201101, end: 20140808
  4. DISPRIN [Concomitant]
     Active Substance: ASPIRIN
     Indication: OROPHARYNGEAL PAIN
     Dosage: 300MG TWICE PER DAY
     Route: 048
     Dates: start: 1993, end: 20140808
  5. PURICOS [Concomitant]
     Active Substance: ALLOPURINOL
     Indication: GOUT
     Dosage: 300MG PER DAY
     Route: 048
     Dates: start: 2007, end: 20140808
  6. SLOW K [Concomitant]
     Active Substance: POTASSIUM CHLORIDE
     Indication: CARDIAC FAILURE
     Dosage: 600MG PER DAY
     Route: 048
     Dates: start: 20140523, end: 20140808
  7. COMBIVENT [Concomitant]
     Active Substance: ALBUTEROL SULFATE\IPRATROPIUM BROMIDE
     Indication: CHRONIC OBSTRUCTIVE PULMONARY DISEASE
     Route: 055
     Dates: start: 201006
  8. LASIX [Concomitant]
     Active Substance: FUROSEMIDE
     Indication: CARDIAC FAILURE
     Dosage: 20MG PER DAY
     Route: 048
     Dates: start: 20140523, end: 20140802
  9. CARDICOR [Concomitant]
     Active Substance: BISOPROLOL
     Indication: MYOCARDIAL ISCHAEMIA
     Dosage: 2.5MG PER DAY
     Route: 048
     Dates: start: 20131011, end: 20140808
  10. SIMVASTATIN. [Concomitant]
     Active Substance: SIMVASTATIN
     Indication: HYPERCHOLESTEROLAEMIA
     Dosage: 20MG PER DAY
     Route: 048
     Dates: start: 1993, end: 20140808
  11. TIOTROPIUM BROMIDE [Concomitant]
     Active Substance: TIOTROPIUM BROMIDE
     Indication: CHRONIC OBSTRUCTIVE PULMONARY DISEASE
     Dosage: 18MCG PER DAY
     Route: 055
     Dates: start: 20140523, end: 20140808
  12. FLUTICASONE FUROATE [Suspect]
     Active Substance: FLUTICASONE FUROATE
     Indication: CHRONIC OBSTRUCTIVE PULMONARY DISEASE
     Dosage: 100MCG PER DAY
     Route: 055
     Dates: start: 20111110
  13. SPIRACTIN [Concomitant]
     Active Substance: SPIRONOLACTONE
     Indication: CARDIAC FAILURE
     Dosage: 12.5MG PER DAY
     Route: 048
     Dates: start: 20131113, end: 20140808
  14. PULMISON [Concomitant]
     Indication: CHRONIC OBSTRUCTIVE PULMONARY DISEASE
     Dosage: 40MG PER DAY
     Route: 048
     Dates: start: 20140414, end: 20140503
  15. RYTHMOL [Concomitant]
     Active Substance: PROPAFENONE HYDROCHLORIDE
     Indication: SUPRAVENTRICULAR TACHYARRHYTHMIA
     Dosage: 150MG THREE TIMES PER DAY
     Route: 048
     Dates: start: 20120328, end: 20140808
  16. GAVISCON [Concomitant]
     Active Substance: ALUMINUM HYDROXIDE\MAGNESIUM CARBONATE
     Indication: DYSPEPSIA
     Route: 048
     Dates: start: 20130109, end: 20140808
  17. WARFARIN [Concomitant]
     Active Substance: WARFARIN
     Indication: PULMONARY EMBOLISM
     Dosage: 3MG PER DAY
     Route: 048
     Dates: start: 20131117, end: 20140808

REACTIONS (1)
  - Pneumonia haemophilus [Recovered/Resolved]

NARRATIVE: CASE EVENT DATE: 20140528
